FAERS Safety Report 17166375 (Version 3)
Quarter: 2020Q1

REPORT INFORMATION
  Report Type: Report from Study
  Country: GB (occurrence: GB)
  Receive Date: 20191217
  Receipt Date: 20200219
  Transmission Date: 20200409
  Serious: Yes (Hospitalization)
  Sender: FDA-Public Use
  Company Number: GB-ACTELION-A-NJ2019-199542

PATIENT
  Age: 55 Year
  Sex: Female

DRUGS (1)
  1. VENTAVIS [Suspect]
     Active Substance: ILOPROST
     Indication: PULMONARY ARTERIAL HYPERTENSION
     Route: 055

REACTIONS (6)
  - Wrong technique in device usage process [Unknown]
  - Drug delivery system malfunction [Recovered/Resolved]
  - Device malfunction [Recovered/Resolved]
  - Product dose omission [Unknown]
  - Hospitalisation [Unknown]
  - Product cleaning inadequate [Unknown]
